FAERS Safety Report 5632020-3 (Version None)
Quarter: 2008Q1

REPORT INFORMATION
  Report Type: 
  Country: None (occurrence: None)
  Receive Date: 20080213
  Receipt Date: 20080128
  Transmission Date: 20080703
  Serious: Yes (Death)
  Sender: FDA-Public Use
  Company Number: 8029622

PATIENT
  Age: 66 Year
  Sex: Female

DRUGS (1)
  1. KEPPRA [Suspect]
     Dosage: 1 G 2/D IV
     Route: 042
     Dates: start: 20080123

REACTIONS (1)
  - DEATH [None]
